FAERS Safety Report 4985888-8 (Version None)
Quarter: 2006Q2

REPORT INFORMATION
  Report Type: 
  Country: None (occurrence: None)
  Receive Date: 20060419
  Receipt Date: 20060331
  Transmission Date: 20061013
  Serious: Yes (Other)
  Sender: FDA-Public Use
  Company Number: CA200604000195

PATIENT
  Age: 81 Year
  Sex: Female
  Weight: 52.6 kg

DRUGS (12)
  1. FORTEO [Suspect]
     Indication: OSTEOPOROSIS
     Dosage: 20 UG, DAILY (1/D)
     Dates: start: 20051115
  2. FORTEO [Concomitant]
  3. HYDRAZIDE (HYDROCHLOROTHIAZIDE) [Concomitant]
  4. LOSEC (OMEPRAZOLE) [Concomitant]
  5. SYNTHROID [Concomitant]
  6. ACETYLSALICYLIC ACID SRT [Concomitant]
  7. GRAVOL TAB [Concomitant]
  8. CALCIUM GLUCONATE [Concomitant]
  9. CENTRUM (MINERALS NOS, VITAMINS NOS) [Concomitant]
  10. VITAMIN D [Concomitant]
  11. HALIBUT-LIVER OIL [Concomitant]
  12. VITAMIN E [Concomitant]

REACTIONS (9)
  - ASTHENIA [None]
  - CONTUSION [None]
  - DIARRHOEA [None]
  - FALL [None]
  - INFLUENZA [None]
  - LOSS OF CONSCIOUSNESS [None]
  - NAUSEA [None]
  - VOMITING [None]
  - WEIGHT DECREASED [None]
